FAERS Safety Report 23803692 (Version 1)
Quarter: 2024Q2

REPORT INFORMATION
  Report Type: Spontaneous
  Country: US (occurrence: US)
  Receive Date: 20240501
  Receipt Date: 20240501
  Transmission Date: 20240716
  Serious: No
  Sender: FDA-Public Use
  Company Number: US-Covis Pharma GmbH-2024COV00475

PATIENT
  Age: 71 Year
  Sex: Female

DRUGS (14)
  1. RILUZOLE [Suspect]
     Active Substance: RILUZOLE
     Route: 048
  2. RELYVRIO [Suspect]
     Active Substance: SODIUM PHENYLBUTYRATE\TAURURSODIOL
     Indication: Amyotrophic lateral sclerosis
     Dosage: 1 DOSAGE FORM 1 SACHET ONCE DAILY FOR 3 WEEKS THEN 1 SACHET TWICE DAILY, 2/DAYS
     Route: 048
  3. RADICAVA ORS [Suspect]
     Active Substance: EDARAVONE
     Indication: Amyotrophic lateral sclerosis
     Dosage: QD FOR 10 DAYS OUT OF 14 DAYS, FOLLOWED BY 14-DAY DRUG FREE PERIODS,
     Route: 048
     Dates: start: 20231104
  4. TYLENOL [Concomitant]
     Active Substance: ACETAMINOPHEN
  5. CRANBERRY [Concomitant]
     Active Substance: CRANBERRY
  6. ESTRADIOL [Concomitant]
     Active Substance: ESTRADIOL
  7. ZINC [Concomitant]
     Active Substance: PYRITHIONE ZINC\ZINC\ZINC CHLORIDE
  8. BIOTIN [Concomitant]
     Active Substance: BIOTIN
  9. One a day women^s 50+ complete multivitamin [Concomitant]
  10. VITAMIN C [Concomitant]
     Active Substance: ASCORBIC ACID
  11. VITAMIN D2 [Concomitant]
     Active Substance: ERGOCALCIFEROL
  12. BACLOFEN [Concomitant]
     Active Substance: BACLOFEN
  13. OMEPRAZOLE [Concomitant]
     Active Substance: OMEPRAZOLE
     Indication: Dyspepsia
  14. IBUPROFEN [Concomitant]
     Active Substance: IBUPROFEN

REACTIONS (8)
  - Dyspepsia [Unknown]
  - Bladder disorder [Not Recovered/Not Resolved]
  - Salivary hypersecretion [Not Recovered/Not Resolved]
  - Muscular weakness [Not Recovered/Not Resolved]
  - Diarrhoea [Not Recovered/Not Resolved]
  - Alopecia [Unknown]
  - Dizziness [Unknown]
  - Asthenia [Unknown]

NARRATIVE: CASE EVENT DATE: 20230101
